FAERS Safety Report 13986256 (Version 5)
Quarter: 2017Q4

REPORT INFORMATION
  Report Type: Spontaneous
  Country: US (occurrence: US)
  Receive Date: 20170919
  Receipt Date: 20171127
  Transmission Date: 20180321
  Serious: No
  Sender: FDA-Public Use
  Company Number: US-VERTEX PHARMACEUTICALS-2017-005104

PATIENT
  Sex: Male

DRUGS (24)
  1. SERTRALINE [Concomitant]
     Active Substance: SERTRALINE HYDROCHLORIDE
  2. LOSARTAN POT [Concomitant]
     Active Substance: LOSARTAN POTASSIUM
  3. NOVOLOG [Concomitant]
     Active Substance: INSULIN ASPART
  4. PRIMIDONE. [Interacting]
     Active Substance: PRIMIDONE
     Indication: PRODUCT USED FOR UNKNOWN INDICATION
     Dosage: UNK
     Route: 065
     Dates: end: 2017
  5. LIOTHYRONINE [Concomitant]
     Active Substance: LIOTHYRONINE
  6. VITAMIN D3 [Concomitant]
     Active Substance: CHOLECALCIFEROL
  7. LEVOTHYROXINE. [Concomitant]
     Active Substance: LEVOTHYROXINE
  8. ASPIRIN. [Concomitant]
     Active Substance: ASPIRIN
  9. ATORVASTATIN [Concomitant]
     Active Substance: ATORVASTATIN
  10. PULMICORT TURBUHALER [Concomitant]
     Active Substance: BUDESONIDE
  11. ENSURE ACTIVE HIGH PROTEIN [Concomitant]
  12. KALYDECO [Suspect]
     Active Substance: IVACAFTOR
     Indication: CYSTIC FIBROSIS
     Dosage: 1 TAB (150 MG), BID
     Route: 048
     Dates: start: 20170907
  13. FLOVENT HFA [Concomitant]
     Active Substance: FLUTICASONE PROPIONATE
  14. SODIUM CHLORIDE. [Concomitant]
     Active Substance: SODIUM CHLORIDE
  15. METOPROLOL. [Concomitant]
     Active Substance: METOPROLOL
  16. DEPO-TEST [Concomitant]
  17. PLAVIX [Concomitant]
     Active Substance: CLOPIDOGREL BISULFATE
  18. LANTUS [Concomitant]
     Active Substance: INSULIN GLARGINE
  19. TRILEPTAL [Interacting]
     Active Substance: OXCARBAZEPINE
     Indication: PRODUCT USED FOR UNKNOWN INDICATION
     Dosage: 300 MG, UNK
     Route: 065
  20. PULMOZYME [Concomitant]
     Active Substance: DORNASE ALFA
  21. CLOPIDOGREL [Concomitant]
     Active Substance: CLOPIDOGREL BISULFATE
  22. PROPRANOLOL [Concomitant]
     Active Substance: PROPRANOLOL HYDROCHLORIDE
     Dosage: 10 MG, UNK
  23. FISH OIL [Concomitant]
     Active Substance: FISH OIL
  24. TOBI [Concomitant]
     Active Substance: TOBRAMYCIN

REACTIONS (4)
  - Drug interaction [Unknown]
  - Diarrhoea [Recovered/Resolved]
  - Vision blurred [Unknown]
  - Faeces discoloured [Recovered/Resolved]

NARRATIVE: CASE EVENT DATE: 2017
